FAERS Safety Report 11759735 (Version 1)
Quarter: 2015Q4

REPORT INFORMATION
  Report Type: Spontaneous
  Country: US (occurrence: US)
  Receive Date: 20151120
  Receipt Date: 20151120
  Transmission Date: 20160304
  Serious: No
  Sender: FDA-Public Use
  Company Number: US-ELI_LILLY_AND_COMPANY-US201210006035

PATIENT
  Age: 59 Year
  Sex: Female

DRUGS (2)
  1. VITAMIN D [Concomitant]
     Active Substance: CHOLECALCIFEROL
     Dosage: 55000 U, UNK
  2. FORTEO [Suspect]
     Active Substance: TERIPARATIDE
     Indication: BONE DISORDER
     Dosage: 20 UG, QD

REACTIONS (5)
  - Visual impairment [Unknown]
  - Intentional product misuse [Not Recovered/Not Resolved]
  - Hepatic enzyme increased [Unknown]
  - Vitamin D decreased [Unknown]
  - Off label use [Recovered/Resolved]
